FAERS Safety Report 20937835 (Version 2)
Quarter: 2022Q2

REPORT INFORMATION
  Report Type: Spontaneous
  Country: US (occurrence: US)
  Receive Date: 20220609
  Receipt Date: 20220623
  Transmission Date: 20220720
  Serious: No
  Sender: FDA-Public Use
  Company Number: US-BRISTOL-MYERS SQUIBB COMPANY-2022-046182

PATIENT
  Age: 83 Year
  Sex: Male

DRUGS (1)
  1. REVLIMID [Suspect]
     Active Substance: LENALIDOMIDE
     Indication: Product used for unknown indication
     Route: 048
     Dates: start: 202204

REACTIONS (5)
  - Constipation [Recovered/Resolved]
  - Haemoglobin decreased [Not Recovered/Not Resolved]
  - Contusion [Unknown]
  - Rash [Unknown]
  - Sinusitis [Unknown]

NARRATIVE: CASE EVENT DATE: 20220503
